FAERS Safety Report 17665861 (Version 2)
Quarter: 2020Q2

REPORT INFORMATION
  Report Type: Spontaneous
  Country: US (occurrence: US)
  Receive Date: 20200414
  Receipt Date: 20200414
  Transmission Date: 20200713
  Serious: No
  Sender: FDA-Public Use
  Company Number: US-JNJFOC-20200404598

PATIENT
  Sex: Female

DRUGS (1)
  1. WOMENS ROGAINE UNSCENTED [Suspect]
     Active Substance: MINOXIDIL
     Indication: ALOPECIA
     Dosage: STARTED ABOUT A YEAR AGO
     Route: 065
     Dates: start: 2019

REACTIONS (2)
  - Product formulation issue [Unknown]
  - Poor quality product administered [Unknown]
